FAERS Safety Report 5663193-4 (Version None)
Quarter: 2008Q1

REPORT INFORMATION
  Report Type: 
  Country: None (occurrence: None)
  Receive Date: 20080310
  Receipt Date: 20080221
  Transmission Date: 20080703
  Serious: Yes (Hospitalization)
  Sender: FDA-Public Use
  Company Number: 8030053

PATIENT
  Age: 84 Year
  Sex: Female

DRUGS (3)
  1. KEPPRA [Suspect]
     Indication: HYPOAESTHESIA
     Dosage: 2 DF 2/D PO
     Route: 048
     Dates: start: 20060101
  2. KEPPRA [Suspect]
     Indication: HYPOAESTHESIA
     Dosage: 3 DF 2/D PO
     Route: 048
     Dates: end: 20071201
  3. KEPPRA [Suspect]
     Indication: HYPOAESTHESIA
     Dosage: 4000 MG /D PO
     Route: 048
     Dates: start: 20071204

REACTIONS (2)
  - CEREBRAL HAEMORRHAGE [None]
  - FALL [None]
